FAERS Safety Report 20410317 (Version 3)
Quarter: 2022Q2

REPORT INFORMATION
  Report Type: Spontaneous
  Country: FR (occurrence: None)
  Receive Date: 20220201
  Receipt Date: 20220404
  Transmission Date: 20220721
  Serious: Yes (Life-Threatening, Hospitalization, Disabling)
  Sender: FDA-Public Use
  Company Number: FR-Orion Corporation ORION PHARMA-TREX2022-0021

PATIENT
  Age: 39 Year
  Sex: Male

DRUGS (42)
  1. METHOTREXATE SODIUM [Suspect]
     Active Substance: METHOTREXATE SODIUM
     Indication: Behcet^s syndrome
     Route: 048
     Dates: start: 2017
  2. METHOTREXATE SODIUM [Suspect]
     Active Substance: METHOTREXATE SODIUM
     Dosage: ON FRIDAY
     Route: 048
     Dates: start: 2020, end: 20211118
  3. METHOTREXATE [Concomitant]
     Active Substance: METHOTREXATE
     Indication: Behcet^s syndrome
     Route: 048
     Dates: start: 2003, end: 2004
  4. METHOTREXATE [Concomitant]
     Active Substance: METHOTREXATE
     Indication: Disease recurrence
  5. FERROUS SULFATE [Concomitant]
     Active Substance: FERROUS SULFATE
     Indication: Iron deficiency anaemia
     Route: 048
     Dates: start: 20211020
  6. COLCHICINE [Concomitant]
     Active Substance: COLCHICINE
     Indication: Behcet^s syndrome
     Route: 048
     Dates: start: 2004, end: 2008
  7. COLCHICINE [Concomitant]
     Active Substance: COLCHICINE
     Indication: Pain in extremity
     Route: 048
     Dates: start: 2009
  8. COLCHICINE [Concomitant]
     Active Substance: COLCHICINE
     Route: 065
     Dates: start: 2015
  9. COLCHICINE [Concomitant]
     Active Substance: COLCHICINE
     Route: 065
     Dates: start: 2017
  10. COLCHICINE [Concomitant]
     Active Substance: COLCHICINE
     Route: 065
     Dates: start: 2020
  11. COLCHICINE [Concomitant]
     Active Substance: COLCHICINE
     Route: 065
     Dates: start: 2021
  12. REMICADE [Concomitant]
     Active Substance: INFLIXIMAB
     Indication: Behcet^s syndrome
     Route: 041
     Dates: start: 2010, end: 2012
  13. COLCHICINE [Concomitant]
     Active Substance: COLCHICINE
     Indication: Behcet^s syndrome
     Route: 048
     Dates: start: 2001, end: 2004
  14. ZOLOFT [Concomitant]
     Active Substance: SERTRALINE HYDROCHLORIDE
     Indication: Mixed anxiety and depressive disorder
     Route: 048
     Dates: start: 2021
  15. AZATHIOPRINE SODIUM [Concomitant]
     Active Substance: AZATHIOPRINE SODIUM
     Indication: Behcet^s syndrome
     Route: 048
     Dates: start: 2004, end: 2008
  16. TOVIAZ [Concomitant]
     Active Substance: FESOTERODINE FUMARATE
     Indication: Urinary incontinence
     Route: 048
     Dates: start: 2021
  17. BUSPIRONE HYDROCHLORIDE [Concomitant]
     Active Substance: BUSPIRONE HYDROCHLORIDE
     Indication: Mixed anxiety and depressive disorder
     Route: 048
     Dates: start: 2021
  18. PREDNISONE [Concomitant]
     Active Substance: PREDNISONE
     Indication: Behcet^s syndrome
     Dosage: 1 MG/KG DAILY WITH GRADUAL DECREASE
     Route: 048
     Dates: start: 2000, end: 2003
  19. PREDNISONE [Concomitant]
     Active Substance: PREDNISONE
     Route: 048
     Dates: start: 2004, end: 2005
  20. PREDNISONE [Concomitant]
     Active Substance: PREDNISONE
     Route: 048
     Dates: start: 2009, end: 2017
  21. SOLU-MEDROL [Concomitant]
     Active Substance: METHYLPREDNISOLONE SODIUM SUCCINATE
     Indication: Behcet^s syndrome
     Route: 042
     Dates: start: 2012, end: 2012
  22. HUMIRA [Concomitant]
     Active Substance: ADALIMUMAB
     Indication: Behcet^s syndrome
     Route: 065
     Dates: start: 2015
  23. HUMIRA [Concomitant]
     Active Substance: ADALIMUMAB
     Indication: Urinary tract disorder
     Dosage: INCREASED
     Route: 065
  24. HUMIRA [Concomitant]
     Active Substance: ADALIMUMAB
     Route: 065
     Dates: start: 2017
  25. HUMIRA [Concomitant]
     Active Substance: ADALIMUMAB
     Route: 065
     Dates: start: 2020
  26. HUMIRA [Concomitant]
     Active Substance: ADALIMUMAB
     Route: 065
     Dates: start: 2021
  27. HUMIRA [Concomitant]
     Active Substance: ADALIMUMAB
     Route: 058
     Dates: start: 2015, end: 2017
  28. HUMIRA [Concomitant]
     Active Substance: ADALIMUMAB
     Route: 058
     Dates: start: 2017, end: 20211118
  29. OXAZEPAM [Concomitant]
     Active Substance: OXAZEPAM
     Indication: Mixed anxiety and depressive disorder
     Route: 048
  30. SULPIRIDE [Concomitant]
     Active Substance: SULPIRIDE
     Indication: Mixed anxiety and depressive disorder
     Route: 048
     Dates: start: 2021
  31. VESICARE [Concomitant]
     Active Substance: SOLIFENACIN SUCCINATE
     Indication: Urinary incontinence
     Route: 048
     Dates: start: 2021
  32. CYCLOPHOSPHAMIDE [Concomitant]
     Active Substance: CYCLOPHOSPHAMIDE
     Indication: Behcet^s syndrome
     Route: 065
     Dates: start: 2012
  33. CYCLOPHOSPHAMIDE [Concomitant]
     Active Substance: CYCLOPHOSPHAMIDE
     Dosage: INCREASED
     Route: 065
     Dates: start: 2015
  34. CALCIUM\CHOLECALCIFEROL [Concomitant]
     Active Substance: CALCIUM\CHOLECALCIFEROL
     Indication: Depressive symptom
     Route: 065
  35. CALCIUM\CHOLECALCIFEROL [Concomitant]
     Active Substance: CALCIUM\CHOLECALCIFEROL
     Route: 065
     Dates: start: 2004
  36. PROZAC [Concomitant]
     Active Substance: FLUOXETINE HYDROCHLORIDE
     Indication: Depressive symptom
     Route: 065
     Dates: start: 2003
  37. KARDEGIC [Concomitant]
     Active Substance: ASPIRIN DL-LYSINE
     Indication: Depressive symptom
     Route: 065
     Dates: start: 2003
  38. KARDEGIC [Concomitant]
     Active Substance: ASPIRIN DL-LYSINE
     Indication: Pain in extremity
     Route: 065
     Dates: start: 2009
  39. SODIUM BICARBONATE [Concomitant]
     Active Substance: SODIUM BICARBONATE
     Route: 048
     Dates: start: 2021
  40. CYCLOPHOSPHAMIDE [Concomitant]
     Active Substance: CYCLOPHOSPHAMIDE
     Indication: Behcet^s syndrome
     Route: 042
     Dates: start: 200308, end: 2004
  41. CYCLOPHOSPHAMIDE [Concomitant]
     Active Substance: CYCLOPHOSPHAMIDE
     Route: 042
     Dates: start: 2006, end: 2007
  42. CYCLOPHOSPHAMIDE [Concomitant]
     Active Substance: CYCLOPHOSPHAMIDE
     Route: 042
     Dates: start: 2012, end: 2017

REACTIONS (2)
  - Hodgkin^s disease [Not Recovered/Not Resolved]
  - Product use in unapproved indication [Unknown]

NARRATIVE: CASE EVENT DATE: 20170101
